FAERS Safety Report 19752163 (Version 1)
Quarter: 2021Q3

REPORT INFORMATION
  Report Type: Spontaneous
  Country: US (occurrence: US)
  Receive Date: 20210827
  Receipt Date: 20210827
  Transmission Date: 20211014
  Serious: Yes (Other)
  Sender: FDA-Public Use
  Company Number: US-APOLLO PHARMACEUTICALS-2021-APO-000013

PATIENT

DRUGS (1)
  1. PHENYLEPHRINE HYDROCHLORIDE. [Suspect]
     Active Substance: PHENYLEPHRINE HYDROCHLORIDE
     Indication: PRODUCT USED FOR UNKNOWN INDICATION
     Dosage: 40 MG/ML
     Route: 042

REACTIONS (1)
  - Thrombophlebitis [Recovered/Resolved]
